FAERS Safety Report 7500117-9 (Version None)
Quarter: 2011Q2

REPORT INFORMATION
  Report Type: 
  Country: None (occurrence: None)
  Receive Date: 20110524
  Receipt Date: 20100720
  Transmission Date: 20111010
  Serious: No
  Sender: FDA-Public Use
  Company Number: US-NOVEN-ALL1-2010-01715

PATIENT

DRUGS (2)
  1. DAYTRANA [Suspect]
     Dosage: 10 MG, 1X/DAY:QD
     Route: 062
     Dates: start: 20100316
  2. FLUVOXAMINE                        /00615202/ [Concomitant]
     Dosage: 50 MG, 1X/DAY:QD, NIGHTLY
     Route: 048
     Dates: start: 20100101

REACTIONS (2)
  - APPLICATION SITE ERYTHEMA [None]
  - OFF LABEL USE [None]
